FAERS Safety Report 14270198 (Version 2)
Quarter: 2018Q4

REPORT INFORMATION
  Report Type: Spontaneous
  Country: US (occurrence: US)
  Receive Date: 20171211
  Receipt Date: 20181121
  Transmission Date: 20190204
  Serious: Yes (Other)
  Sender: FDA-Public Use
  Company Number: US-OTSUKA-2017_022094

PATIENT
  Age: 39 Year
  Sex: Male

DRUGS (1)
  1. ABILIFY [Suspect]
     Active Substance: ARIPIPRAZOLE
     Indication: BIPOLAR DISORDER
     Dosage: UNK
     Route: 065
     Dates: start: 20151025, end: 201602

REACTIONS (11)
  - Drug abuse [Unknown]
  - Divorced [Unknown]
  - Suicide attempt [Unknown]
  - Loss of employment [Unknown]
  - Economic problem [Unknown]
  - Condition aggravated [Unknown]
  - Gambling [Unknown]
  - Imprisonment [Unknown]
  - Theft [Unknown]
  - Personality change [Unknown]
  - Suicidal ideation [Unknown]

NARRATIVE: CASE EVENT DATE: 201511
